FAERS Safety Report 21062761 (Version 2)
Quarter: 2024Q2

REPORT INFORMATION
  Report Type: Spontaneous
  Country: US (occurrence: US)
  Receive Date: 20220711
  Receipt Date: 20240528
  Transmission Date: 20240716
  Serious: No
  Sender: FDA-Public Use
  Company Number: US-SA-SAC20220707000409

PATIENT
  Age: 16 Year
  Sex: Male

DRUGS (3)
  1. DUPIXENT [Suspect]
     Active Substance: DUPILUMAB
     Indication: Dermatitis atopic
     Dosage: 300 MG, QOW
     Route: 058
     Dates: start: 20210910
  2. DUPIXENT [Suspect]
     Active Substance: DUPILUMAB
     Dosage: 300 MG, QOW
     Route: 058
     Dates: start: 20240409
  3. CLOBETASOL [Concomitant]
     Active Substance: CLOBETASOL

REACTIONS (5)
  - Discomfort [Unknown]
  - Sleep disorder due to a general medical condition [Unknown]
  - Rash [Unknown]
  - Dermatitis atopic [Unknown]
  - Product dose omission in error [Unknown]
